FAERS Safety Report 21403518 (Version 1)
Quarter: 2022Q4

REPORT INFORMATION
  Report Type: Spontaneous
  Country: PT (occurrence: PT)
  Receive Date: 20221003
  Receipt Date: 20221003
  Transmission Date: 20230112
  Serious: Yes (Other)
  Sender: FDA-Public Use
  Company Number: PT-NOVARTISPH-NVSC2022PT221831

PATIENT
  Age: 76 Year
  Sex: Female

DRUGS (14)
  1. RIBOCICLIB [Suspect]
     Active Substance: RIBOCICLIB
     Indication: Hormone receptor positive breast cancer
     Dosage: 600 MG (D1- 21 FROM  28/2 8  DAYS)
     Route: 065
     Dates: start: 20210302
  2. RIBOCICLIB [Suspect]
     Active Substance: RIBOCICLIB
     Indication: Metastases to bone
     Dosage: 400 MG (D1- 21  FROM 28/2 8 DAY)
     Route: 065
     Dates: start: 202203
  3. RIBOCICLIB [Suspect]
     Active Substance: RIBOCICLIB
     Indication: Metastases to lung
  4. PITAVASTATIN [Concomitant]
     Active Substance: PITAVASTATIN
     Indication: Product used for unknown indication
     Dosage: UNK
     Route: 065
  5. CANDESARTAN [Concomitant]
     Active Substance: CANDESARTAN
     Indication: Product used for unknown indication
     Dosage: UNK
     Route: 065
  6. METFORMIN HYDROCHLORIDE\SITAGLIPTIN PHOSPHATE [Concomitant]
     Active Substance: METFORMIN HYDROCHLORIDE\SITAGLIPTIN PHOSPHATE
     Indication: Product used for unknown indication
     Dosage: UNK
     Route: 065
  7. ESOMEPRAZOLE [Concomitant]
     Active Substance: ESOMEPRAZOLE
     Indication: Product used for unknown indication
     Route: 065
  8. ASPIRIN [Concomitant]
     Active Substance: ASPIRIN
     Indication: Product used for unknown indication
     Dosage: UNK
     Route: 065
  9. LETROZOLE [Concomitant]
     Active Substance: LETROZOLE
     Indication: Hormone receptor positive breast cancer
     Dosage: 2.5 MG, QD
     Route: 065
     Dates: start: 20210202
  10. LETROZOLE [Concomitant]
     Active Substance: LETROZOLE
     Indication: Metastases to bone
  11. LETROZOLE [Concomitant]
     Active Substance: LETROZOLE
     Indication: Metastases to lung
  12. ZOLEDRONIC ACID [Concomitant]
     Active Substance: ZOLEDRONIC ACID
     Indication: Hormone receptor positive breast cancer
     Dosage: 4 MG, QMO
     Route: 042
     Dates: start: 20210330
  13. ZOLEDRONIC ACID [Concomitant]
     Active Substance: ZOLEDRONIC ACID
     Indication: Metastases to bone
     Dosage: UNK (NOW QUARTERLY)
     Route: 065
  14. ZOLEDRONIC ACID [Concomitant]
     Active Substance: ZOLEDRONIC ACID
     Indication: Metastases to lung

REACTIONS (12)
  - Hypomagnesaemia [Unknown]
  - Hypophosphataemia [Unknown]
  - Neutropenia [Unknown]
  - Hypertension [Unknown]
  - Headache [Unknown]
  - Hypocalcaemia [Unknown]
  - Oedema mucosal [Unknown]
  - Lung disorder [Unknown]
  - Neoplasm [Unknown]
  - Carbohydrate antigen 15-3 increased [Unknown]
  - Alopecia [Unknown]
  - Fatigue [Unknown]

NARRATIVE: CASE EVENT DATE: 20211101
